FAERS Safety Report 10959182 (Version 1)
Quarter: 2015Q1

REPORT INFORMATION
  Report Type: Spontaneous
  Country: US (occurrence: US)
  Receive Date: 20150327
  Receipt Date: 20150327
  Transmission Date: 20150721
  Serious: Yes (Death, Other)
  Sender: FDA-Public Use
  Company Number: US-CIPLA LTD.-2015US02353

PATIENT

DRUGS (8)
  1. GUAIFENESIN/PSEUDOEPHEDRINE [Suspect]
     Active Substance: GUAIFENESIN\PSEUDOEPHEDRINE HYDROCHLORIDE
  2. MORPHINE [Suspect]
     Active Substance: MORPHINE
  3. TRAMADOL [Suspect]
     Active Substance: TRAMADOL
  4. FLUPHENAZINE [Suspect]
     Active Substance: FLUPHENAZINE
  5. THEOPHYLLINE [Suspect]
     Active Substance: THEOPHYLLINE ANHYDROUS
  6. HYDROMORPHONE [Suspect]
     Active Substance: HYDROMORPHONE
  7. AMLODIPINE [Suspect]
     Active Substance: AMLODIPINE BESYLATE
  8. CITALOPRAM [Suspect]
     Active Substance: CITALOPRAM HYDROBROMIDE

REACTIONS (3)
  - Completed suicide [Fatal]
  - Respiratory arrest [Unknown]
  - Cardiac arrest [Unknown]
